FAERS Safety Report 24179050 (Version 1)
Quarter: 2024Q3

REPORT INFORMATION
  Report Type: Spontaneous
  Country: US (occurrence: US)
  Receive Date: 20240806
  Receipt Date: 20240806
  Transmission Date: 20241017
  Serious: Yes (Other)
  Sender: FERRING
  Company Number: US-FERRINGPH-2024FE02948

PATIENT
  Sex: Female

DRUGS (1)
  1. ENDOMETRIN [Suspect]
     Active Substance: PROGESTERONE
     Indication: Pregnancy
     Route: 067

REACTIONS (4)
  - Abortion spontaneous [Unknown]
  - Product contamination microbial [Unknown]
  - Recalled product administered [Unknown]
  - Product use in unapproved indication [Unknown]

NARRATIVE: CASE EVENT DATE: 20240101
